FAERS Safety Report 8489574-1 (Version None)
Quarter: 2012Q3

REPORT INFORMATION
  Report Type: 
  Country: None (occurrence: None)
  Receive Date: 20120705
  Receipt Date: 20120626
  Transmission Date: 20120928
  Serious: No
  Sender: FDA-Public Use
  Company Number: DE-UCBSA-054234

PATIENT
  Sex: Female

DRUGS (1)
  1. KEPPRA [Suspect]
     Dates: start: 20110501

REACTIONS (1)
  - THROMBOCYTOPENIA [None]
